FAERS Safety Report 12103680 (Version 1)
Quarter: 2016Q1

REPORT INFORMATION
  Report Type: Spontaneous
  Country: US (occurrence: US)
  Receive Date: 20160222
  Receipt Date: 20160222
  Transmission Date: 20160526
  Serious: Yes (Other)
  Sender: FDA-Public Use
  Company Number: US-BRISTOL-MYERS SQUIBB COMPANY-BMS-2016-012600

PATIENT
  Sex: Female
  Weight: 89.34 kg

DRUGS (3)
  1. BREXPIPRAZOLE [Suspect]
     Active Substance: BREXPIPRAZOLE
     Indication: DOPAMINE DYSREGULATION SYNDROME
     Dosage: 1 MG, QD
     Route: 048
  2. ABILIFY [Suspect]
     Active Substance: ARIPIPRAZOLE
     Indication: BIPOLAR DISORDER
     Dosage: UNK, QD
     Route: 048
     Dates: start: 200605
  3. BREXPIPRAZOLE [Suspect]
     Active Substance: BREXPIPRAZOLE
     Dosage: 2 UNK, UNK

REACTIONS (5)
  - Eating disorder [Not Recovered/Not Resolved]
  - Drug ineffective [Unknown]
  - Schizophrenia [Unknown]
  - Treatment noncompliance [Unknown]
  - Weight increased [Unknown]
